FAERS Safety Report 20982763 (Version 1)
Quarter: 2022Q2

REPORT INFORMATION
  Report Type: Report from Study
  Country: GB (occurrence: GB)
  Receive Date: 20220620
  Receipt Date: 20220620
  Transmission Date: 20220721
  Serious: Yes (Other)
  Sender: FDA-Public Use
  Company Number: GB-GUERBET-GB-20220073

PATIENT
  Age: 74 Year
  Sex: Male

DRUGS (5)
  1. LIPIODOL ULTRA-FLUIDE [Suspect]
     Active Substance: ETHIODIZED OIL
     Indication: Therapeutic embolisation
     Dosage: LIPIODOL IN MIXTURE WITH GLUBRAN (EQUAL PARTS)
     Route: 013
  2. LIPIODOL ULTRA-FLUIDE [Suspect]
     Active Substance: ETHIODIZED OIL
     Dosage: LIPIODOL IN MIXTURE WITH GLUBRAN (EQUAL PARTS)
     Route: 013
  3. ADREKAR [Concomitant]
     Indication: Therapeutic embolisation
     Route: 040
  4. DEXTROSE [Concomitant]
     Active Substance: DEXTROSE
     Indication: Catheter management
     Route: 065
  5. IOMEPROL [Concomitant]
     Active Substance: IOMEPROL
     Indication: Product used for unknown indication
     Dosage: 0.3 TO 0.5 ML
     Route: 065

REACTIONS (2)
  - Transient aphasia [Recovered/Resolved]
  - Product use in unapproved indication [Recovered/Resolved]
